FAERS Safety Report 16594577 (Version 1)
Quarter: 2019Q3

REPORT INFORMATION
  Report Type: Spontaneous
  Country: FR (occurrence: FR)
  Receive Date: 20190718
  Receipt Date: 20190718
  Transmission Date: 20191004
  Serious: Yes (Other)
  Sender: FDA-Public Use
  Company Number: FR-NOVOPROD-672178

PATIENT
  Age: 23 Year
  Sex: Female

DRUGS (1)
  1. GLUCAGEN [Suspect]
     Active Substance: GLUCAGON HYDROCHLORIDE
     Indication: NUCLEAR MAGNETIC RESONANCE IMAGING
     Dosage: 1 INJECTION
     Route: 030
     Dates: start: 20190424, end: 20190424

REACTIONS (5)
  - Feeling abnormal [Not Recovered/Not Resolved]
  - Headache [Not Recovered/Not Resolved]
  - Hot flush [Not Recovered/Not Resolved]
  - Nausea [Not Recovered/Not Resolved]
  - Malaise [Not Recovered/Not Resolved]

NARRATIVE: CASE EVENT DATE: 20190424
